FAERS Safety Report 18251928 (Version 1)
Quarter: 2020Q3

REPORT INFORMATION
  Report Type: Spontaneous
  Country: IT (occurrence: IT)
  Receive Date: 20200910
  Receipt Date: 20200910
  Transmission Date: 20201103
  Serious: Yes (Hospitalization, Other)
  Sender: FDA-Public Use
  Company Number: IT-INGENUS PHARMACEUTICALS, LLC-2020INF000153

PATIENT
  Age: 65 Year
  Sex: Male

DRUGS (2)
  1. OXALIPLATIN. [Suspect]
     Active Substance: OXALIPLATIN
     Indication: METASTATIC CARCINOID TUMOUR
     Dosage: 104 MILLIGRAM/SQ. METER, DAY 1 EVERY 3 WEEKS
     Route: 065
     Dates: start: 20190926
  2. CAPECITABINE. [Suspect]
     Active Substance: CAPECITABINE
     Indication: METASTATIC CARCINOID TUMOUR
     Dosage: 1.6 GRAM PER SQUARE METRE, QD, DAYS 1?15 EVERY 3 WEEKS
     Route: 065
     Dates: start: 20190926

REACTIONS (1)
  - Hyperammonaemic encephalopathy [Recovered/Resolved]
